FAERS Safety Report 9771823 (Version 1)
Quarter: 2013Q4

REPORT INFORMATION
  Report Type: Spontaneous
  Country: GB (occurrence: GB)
  Receive Date: 20131219
  Receipt Date: 20131219
  Transmission Date: 20140711
  Serious: Yes (Other)
  Sender: FDA-Public Use
  Company Number: GB-ROCHE-1321542

PATIENT
  Age: 61 Year
  Sex: Female
  Weight: 91 kg

DRUGS (6)
  1. NAPROXEN [Suspect]
     Indication: PRODUCT USED FOR UNKNOWN INDICATION
     Route: 065
     Dates: start: 20131126
  2. DICLOFENAC SODIUM [Suspect]
     Indication: PRODUCT USED FOR UNKNOWN INDICATION
     Route: 065
     Dates: start: 20131205
  3. TRAMADOL [Concomitant]
     Route: 065
     Dates: start: 20131008
  4. CETIRIZINE [Concomitant]
     Route: 065
     Dates: start: 20130708
  5. LANSOPRAZOLE [Concomitant]
     Route: 065
     Dates: start: 20131126
  6. PARACETAMOL [Concomitant]
     Route: 065
     Dates: start: 20131008

REACTIONS (2)
  - Dyspnoea [Recovered/Resolved]
  - Wheezing [Recovered/Resolved]
